FAERS Safety Report 6910653-1 (Version None)
Quarter: 2010Q3

REPORT INFORMATION
  Report Type: 
  Country: None (occurrence: None)
  Receive Date: 20100806
  Receipt Date: 20100803
  Transmission Date: 20110219
  Serious: Yes (Death)
  Sender: FDA-Public Use
  Company Number: FR-BRISTOL-MYERS SQUIBB COMPANY-15226061

PATIENT

DRUGS (1)
  1. ORENCIA [Suspect]

REACTIONS (1)
  - DEATH [None]
